FAERS Safety Report 19923489 (Version 1)
Quarter: 2021Q4

REPORT INFORMATION
  Report Type: Spontaneous
  Country: US (occurrence: US)
  Receive Date: 20211005
  Receipt Date: 20211005
  Transmission Date: 20220303
  Serious: Yes (Death)
  Sender: FDA-Public Use
  Company Number: None

PATIENT
  Age: 69 Year
  Sex: Male

DRUGS (1)
  1. BARICITINIB [Suspect]
     Active Substance: BARICITINIB
     Indication: Respiratory failure
     Route: 048
     Dates: start: 20210916, end: 20210920

REACTIONS (3)
  - Respiratory failure [None]
  - Disease progression [None]
  - COVID-19 [None]

NARRATIVE: CASE EVENT DATE: 20210921
